FAERS Safety Report 5590953-0 (Version None)
Quarter: 2007Q4

REPORT INFORMATION
  Report Type: 
  Country: None (occurrence: None)
  Receive Date: 20071212
  Receipt Date: 20070926
  Transmission Date: 20080405
  Serious: No
  Sender: FDA-Public Use
  Company Number: 2007RL000439

PATIENT

DRUGS (2)
  1. LOVAZA [Suspect]
     Indication: DRUG USE FOR UNKNOWN INDICATION
     Dosage: 4 GM;QD
  2. TRICOR /00499301/ [Concomitant]

REACTIONS (1)
  - HEPATIC ENZYME INCREASED [None]
